FAERS Safety Report 4504795-8 (Version None)
Quarter: 2004Q4

REPORT INFORMATION
  Report Type: 
  Country: None (occurrence: None)
  Receive Date: 20041118
  Receipt Date: 20041115
  Transmission Date: 20050328
  Serious: Yes (Life-Threatening)
  Sender: FDA-Public Use
  Company Number: US-MERCK-0411USA02512

PATIENT
  Age: 38 Year
  Sex: Male

DRUGS (2)
  1. VIOXX [Suspect]
     Indication: BACK INJURY
     Route: 048
     Dates: start: 20030708
  2. LORTAB [Concomitant]
     Route: 065

REACTIONS (2)
  - CHEST PAIN [None]
  - HEART RATE IRREGULAR [None]
